FAERS Safety Report 6516613-7 (Version None)
Quarter: 2009Q4

REPORT INFORMATION
  Report Type: 
  Country: None (occurrence: None)
  Receive Date: 20091223
  Receipt Date: 20091214
  Transmission Date: 20100525
  Serious: Yes (Disabling, Other)
  Sender: FDA-Public Use
  Company Number: US-MERCK-0805USA02788

PATIENT
  Age: 61 Year
  Sex: Female

DRUGS (7)
  1. FOSAMAX [Suspect]
     Indication: OSTEOPOROSIS
     Route: 048
     Dates: start: 20051001, end: 20071101
  2. FOSAMAX [Suspect]
     Route: 048
     Dates: start: 20080701
  3. FOSAMAX PLUS D [Suspect]
     Route: 048
     Dates: start: 20070101, end: 20071201
  4. FOSAMAX PLUS D [Suspect]
     Route: 048
     Dates: start: 20050101, end: 20060101
  5. CLONAZEPAM [Concomitant]
     Indication: PAIN
     Route: 065
     Dates: start: 20050101, end: 20070101
  6. TORADOL [Concomitant]
     Indication: PAIN
     Route: 065
     Dates: start: 20050101
  7. MEVACOR [Concomitant]
     Indication: BLOOD CHOLESTEROL
     Route: 065
     Dates: start: 20030101

REACTIONS (19)
  - ANXIETY [None]
  - ARTHRALGIA [None]
  - BLADDER DISORDER [None]
  - DEPRESSION [None]
  - DISCOMFORT [None]
  - DRY MOUTH [None]
  - GASTROOESOPHAGEAL REFLUX DISEASE [None]
  - HYPERTENSION [None]
  - HYPOAESTHESIA FACIAL [None]
  - IMPAIRED HEALING [None]
  - JAW DISORDER [None]
  - OSTEOMYELITIS [None]
  - OSTEONECROSIS [None]
  - OSTEOPOROSIS [None]
  - PAIN [None]
  - PARAESTHESIA [None]
  - ROTATOR CUFF SYNDROME [None]
  - SOFT TISSUE INJURY [None]
  - TOOTH FRACTURE [None]
